FAERS Safety Report 5248417-X (Version None)
Quarter: 2007Q1

REPORT INFORMATION
  Report Type: 
  Country: None (occurrence: None)
  Receive Date: 20070227
  Receipt Date: 20070222
  Transmission Date: 20070707
  Serious: Yes (Other)
  Sender: FDA-Public Use
  Company Number: US-SHR-US-2007-006390

PATIENT
  Age: 80 Year
  Sex: Female

DRUGS (8)
  1. MAGNEVIST [Suspect]
     Indication: NUCLEAR MAGNETIC RESONANCE IMAGING
     Dosage: UNK, 1 DOSE
     Route: 042
     Dates: start: 19990609, end: 19990609
  2. MAGNEVIST [Suspect]
     Dosage: UNK, 1 DOSE
     Route: 042
     Dates: start: 20030129, end: 20030129
  3. MAGNEVIST [Suspect]
     Dosage: UNK, 1 DOSE
     Route: 042
     Dates: start: 20030409, end: 20030409
  4. MAGNEVIST [Suspect]
     Dosage: UNK, 1 DOSE
     Route: 042
     Dates: start: 20040125, end: 20040125
  5. MAGNEVIST [Suspect]
     Dosage: UNK, 1 DOSE
     Route: 042
     Dates: start: 20040426, end: 20040426
  6. MAGNEVIST [Suspect]
     Dosage: UNK, 1 DOSE
     Route: 042
     Dates: start: 20041008, end: 20041008
  7. MAGNEVIST [Suspect]
     Dosage: UNK, 1 DOSE
     Route: 042
     Dates: start: 20050210, end: 20050210
  8. MAGNEVIST [Suspect]
     Dosage: UNK, 1 DOSE
     Route: 042
     Dates: start: 20050214, end: 20050214

REACTIONS (1)
  - NEPHROGENIC FIBROSING DERMOPATHY [None]
